FAERS Safety Report 6585367-0 (Version None)
Quarter: 2010Q1

REPORT INFORMATION
  Report Type: 
  Country: None (occurrence: None)
  Receive Date: 20100216
  Receipt Date: 20100216
  Transmission Date: 20100710
  Serious: No
  Sender: FDA-Public Use
  Company Number: None

PATIENT
  Sex: Female
  Weight: 49.4421 kg

DRUGS (3)
  1. PROTONIX [Suspect]
     Indication: ANAEMIA
     Dosage: 40 MG TWICE DAILY ORAL
     Route: 048
     Dates: start: 20081114
  2. PROTONIX [Suspect]
     Indication: GASTROOESOPHAGEAL REFLUX DISEASE
     Dosage: 40 MG TWICE DAILY ORAL
     Route: 048
     Dates: start: 20081114
  3. ZOCOR [Suspect]
     Indication: HYPERLIPIDAEMIA
     Dosage: 40 MG ONCE DAILY ORAL
     Route: 048
     Dates: start: 20080603

REACTIONS (3)
  - DRUG INEFFECTIVE [None]
  - PRODUCT SUBSTITUTION ISSUE [None]
  - TREATMENT FAILURE [None]
